FAERS Safety Report 6531230-0 (Version None)
Quarter: 2010Q1

REPORT INFORMATION
  Report Type: 
  Country: None (occurrence: None)
  Receive Date: 20100108
  Receipt Date: 20100104
  Transmission Date: 20100710
  Serious: Yes (Hospitalization, Other)
  Sender: FDA-Public Use
  Company Number: PHHO2010CH00456

PATIENT
  Sex: Male
  Weight: 114 kg

DRUGS (11)
  1. BLINDED ALISKIREN ALI+TAB+CF [Suspect]
     Indication: CARDIAC FAILURE
     Dosage: CODE NOT BROKEN
     Route: 048
     Dates: start: 20091013
  2. BLINDED ENALAPRIL COMP-ENA+ [Suspect]
     Indication: CARDIAC FAILURE
     Dosage: CODE NOT BROKEN
     Route: 048
     Dates: start: 20091013
  3. BLINDED NO TREATMENT RECEIVED NOMED [Suspect]
     Indication: CARDIAC FAILURE
     Dosage: CODE NOT BROKEN
     Route: 048
     Dates: start: 20091013
  4. ALISKIREN [Suspect]
     Indication: CARDIAC FAILURE
     Route: 048
  5. COMPARATOR ENALAPRIL [Suspect]
     Indication: CARDIAC FAILURE
     Route: 048
  6. ATORVASTATIN [Suspect]
     Indication: HYPERLIPIDAEMIA
     Dosage: 40 MG, QD
     Route: 048
     Dates: start: 20050201, end: 20091225
  7. CITALOPRAM HYDROBROMIDE [Suspect]
     Indication: DEPRESSION
     Dosage: 10 MG, QD
     Route: 048
     Dates: start: 20091221, end: 20091225
  8. SPIRONOLACTONE [Suspect]
     Indication: CARDIAC FAILURE
     Dosage: 12.5 MG, QD
     Route: 048
     Dates: start: 20090802, end: 20091229
  9. TORASEMIDE [Suspect]
     Indication: CARDIAC FAILURE
     Dosage: 60 MG, QD
     Route: 048
     Dates: start: 20091110, end: 20091116
  10. TORASEMIDE [Suspect]
     Dosage: 70 MG, QD
     Route: 048
     Dates: start: 20091117, end: 20091221
  11. TORASEMIDE [Suspect]
     Dosage: 50 MG, QD
     Route: 048
     Dates: start: 20091221

REACTIONS (7)
  - ASTHENIA [None]
  - CARDIAC FAILURE [None]
  - CHRONIC HEPATIC FAILURE [None]
  - DIARRHOEA [None]
  - HEPATIC STEATOSIS [None]
  - HYPERGLYCAEMIA [None]
  - HYPONATRAEMIA [None]
